FAERS Safety Report 14331361 (Version 1)
Quarter: 2017Q4

REPORT INFORMATION
  Report Type: Spontaneous
  Country: US (occurrence: US)
  Receive Date: 20171228
  Receipt Date: 20171228
  Transmission Date: 20180321
  Serious: Yes (Hospitalization, Other)
  Sender: FDA-Public Use
  Company Number: US-IPCA LABORATORIES LIMITED-IPC-2017-US-000332

PATIENT
  Age: 32 Year
  Sex: Male

DRUGS (2)
  1. TRAMADOL. [Suspect]
     Active Substance: TRAMADOL
     Indication: PRODUCT USED FOR UNKNOWN INDICATION
     Dosage: UNK
     Route: 065
  2. 3-METHOXYPHENCYCLIDINE [Suspect]
     Active Substance: 3-METHOXYPHENCYCLIDINE
     Indication: PRODUCT USED FOR UNKNOWN INDICATION
     Route: 065

REACTIONS (4)
  - Depressed level of consciousness [Unknown]
  - Respiratory depression [Unknown]
  - Tachycardia [Unknown]
  - Overdose [Unknown]
